FAERS Safety Report 20071824 (Version 1)
Quarter: 2021Q4

REPORT INFORMATION
  Report Type: Spontaneous
  Country: DE (occurrence: DE)
  Receive Date: 20211116
  Receipt Date: 20211116
  Transmission Date: 20220303
  Serious: Yes (Other)
  Sender: FDA-Public Use
  Company Number: DE-BIOGEN-2021BI01066831

PATIENT
  Age: 32 Year
  Sex: Female
  Weight: 48.5 kg

DRUGS (2)
  1. DALFAMPRIDINE [Suspect]
     Active Substance: DALFAMPRIDINE
     Indication: Multiple sclerosis
     Dosage: 0. - 3.5. GESTATIONAL WEEK?20 [MG/D (10-0-10)]
     Route: 048
     Dates: start: 20200801, end: 20200827
  2. FOLIC ACID [Concomitant]
     Active Substance: FOLIC ACID
     Indication: Prophylaxis of neural tube defect
     Dosage: 4. - 4.2. GESTATIONAL WEEK
     Route: 048
     Dates: start: 20200829, end: 20200831

REACTIONS (2)
  - Abortion missed [Recovered/Resolved]
  - Exposure during pregnancy [Unknown]
